FAERS Safety Report 7633524-4 (Version None)
Quarter: 2011Q3

REPORT INFORMATION
  Report Type: 
  Country: None (occurrence: None)
  Receive Date: 20110725
  Receipt Date: 20110713
  Transmission Date: 20111222
  Serious: Yes (Other)
  Sender: FDA-Public Use
  Company Number: DE-UCBSA-017699

PATIENT
  Sex: Female
  Weight: 60 kg

DRUGS (9)
  1. KEPPRA [Suspect]
     Indication: ENCEPHALITIS
     Dosage: PEG ADMINISTRATION
     Dates: start: 20100101
  2. NEXIUM [Concomitant]
     Indication: PROPHYLAXIS
     Dosage: SINGLE DOSE 20X2, PEG ADMINISTRATION
  3. METOPROLOL TARTRATE [Concomitant]
     Indication: BLOOD PRESSURE
     Dosage: 47.5 DAILY, PEG ADMINISTRATION
  4. CLONAZEPAM [Concomitant]
     Indication: ENCEPHALITIS
     Dosage: PEG ADMINISTRATION
  5. KEPPRA [Suspect]
  6. VIMPAT [Suspect]
     Indication: ENCEPHALITIS
     Dosage: PEG ADMINISTRATION
     Dates: start: 20100401
  7. TORSEMIDE [Concomitant]
     Indication: COLLATERAL CIRCULATION
     Dosage: PEG ADMNISTRATION
  8. SPIRONOLACTONE [Concomitant]
     Indication: COLLATERAL CIRCULATION
     Dosage: PEG ADMINISTRATION
  9. EUNERPAN [Concomitant]
     Indication: PAIN
     Dosage: PEG ADMINISTRATION
     Dates: end: 20100501

REACTIONS (11)
  - CONVERSION DISORDER [None]
  - FOOD AVERSION [None]
  - STATUS EPILEPTICUS [None]
  - EYE PAIN [None]
  - CONFUSIONAL STATE [None]
  - SOMNOLENCE [None]
  - CONVULSION [None]
  - NASAL DISCOMFORT [None]
  - AGGRESSION [None]
  - RESTLESSNESS [None]
  - SNEEZING [None]
